FAERS Safety Report 5132566-0 (Version None)
Quarter: 2006Q4

REPORT INFORMATION
  Report Type: 
  Country: None (occurrence: None)
  Receive Date: 20061017
  Receipt Date: 20061002
  Transmission Date: 20070319
  Serious: Yes (Hospitalization, Other)
  Sender: FDA-Public Use
  Company Number: US200610000434

PATIENT
  Age: 64 Year
  Sex: Female

DRUGS (3)
  1. FORTEO [Suspect]
     Indication: OSTEOPOROSIS
     Dates: start: 20040201, end: 20040101
  2. FORTEO [Suspect]
     Indication: OSTEOPOROSIS
     Dates: start: 20060601
  3. FORTEO [Concomitant]

REACTIONS (8)
  - BODY HEIGHT DECREASED [None]
  - CHOLECYSTECTOMY [None]
  - DIZZINESS [None]
  - FEELING ABNORMAL [None]
  - HERNIA REPAIR [None]
  - PHARMACEUTICAL PRODUCT COMPLAINT [None]
  - PLEURAL EFFUSION [None]
  - TOOTH LOSS [None]
